FAERS Safety Report 4420854-2 (Version None)
Quarter: 2004Q3

REPORT INFORMATION
  Report Type: 
  Country: None (occurrence: None)
  Receive Date: 20040809
  Receipt Date: 20040803
  Transmission Date: 20050211
  Serious: Yes (Death)
  Sender: FDA-Public Use
  Company Number: 200412497JP

PATIENT
  Age: 70 Year
  Sex: Male
  Weight: 35 kg

DRUGS (10)
  1. LASIX [Suspect]
     Route: 048
     Dates: end: 20040714
  2. POLITOSE [Suspect]
     Dosage: DOSE: 3 TABLETS
     Route: 048
     Dates: end: 20040714
  3. GASMOTIN [Suspect]
     Dosage: DOSE: 3 TABLETS
     Route: 048
     Dates: end: 20040714
  4. ROCALTROL [Suspect]
     Route: 048
     Dates: end: 20040714
  5. DIOVAN [Suspect]
     Route: 048
     Dates: end: 20040714
  6. LENDORM [Suspect]
     Route: 048
  7. ATARAX [Suspect]
     Route: 048
  8. ALINAMIN F [Suspect]
     Dosage: DOSE: 3 TABLETS
     Route: 048
     Dates: end: 20040714
  9. NEO-MINOPHAGEN C [Suspect]
     Dosage: DOSE: 6 TABLETS
     Route: 048
     Dates: end: 20040714
  10. BIOFERMIN [Suspect]
     Route: 048
     Dates: end: 20040714

REACTIONS (7)
  - BLOOD ALBUMIN DECREASED [None]
  - BLOOD UREA INCREASED [None]
  - EXCORIATION [None]
  - HAEMATOCRIT DECREASED [None]
  - MEDICATION ERROR [None]
  - TOXIC EPIDERMAL NECROLYSIS [None]
  - WHITE BLOOD CELL COUNT INCREASED [None]
